FAERS Safety Report 5643987-1 (Version None)
Quarter: 2008Q1

REPORT INFORMATION
  Report Type: 
  Country: None (occurrence: None)
  Receive Date: 20080131
  Receipt Date: 20070122
  Transmission Date: 20080703
  Serious: Yes (Hospitalization)
  Sender: FDA-Public Use
  Company Number: ACO_0313_2007

PATIENT
  Sex: Female

DRUGS (2)
  1. ZANAFLEX [Suspect]
  2. MULTIPLE MEDICATIONS [Concomitant]

REACTIONS (2)
  - HYPOTENSION [None]
  - SYNCOPE [None]
